FAERS Safety Report 17069241 (Version 1)
Quarter: 2019Q4

REPORT INFORMATION
  Report Type: Spontaneous
  Country: US (occurrence: US)
  Receive Date: 20191125
  Receipt Date: 20191125
  Transmission Date: 20200122
  Serious: No
  Sender: FDA-Public Use
  Company Number: US-ELI_LILLY_AND_COMPANY-US201911002244

PATIENT
  Age: 45 Year
  Sex: Male

DRUGS (2)
  1. BASAGLAR [Suspect]
     Active Substance: INSULIN GLARGINE
     Indication: TYPE 2 DIABETES MELLITUS
     Dosage: 44 U, UNKNOWN
     Route: 058
  2. BASAGLAR [Suspect]
     Active Substance: INSULIN GLARGINE
     Dosage: 44 U, UNKNOWN
     Route: 058
     Dates: start: 201907

REACTIONS (3)
  - Product storage error [Unknown]
  - Blood glucose increased [Unknown]
  - Accidental underdose [Not Recovered/Not Resolved]

NARRATIVE: CASE EVENT DATE: 201907
